FAERS Safety Report 21808350 (Version 2)
Quarter: 2023Q1

REPORT INFORMATION
  Report Type: Spontaneous
  Country: US (occurrence: US)
  Receive Date: 20230103
  Receipt Date: 20230207
  Transmission Date: 20230417
  Serious: No
  Sender: FDA-Public Use
  Company Number: US-TEVA-2022-US-2046940

PATIENT
  Age: 86 Year
  Sex: Female

DRUGS (2)
  1. AJOVY [Suspect]
     Active Substance: FREMANEZUMAB-VFRM
     Indication: Migraine without aura
     Dosage: 225 MG / 1.5 ML/INJECTION (AUTOINJECTOR)
     Route: 065
     Dates: start: 20220506
  2. AJOVY [Suspect]
     Active Substance: FREMANEZUMAB-VFRM
     Dosage: 225 MG / 1.5 ML/INJECTION (AUTOINJECTOR)
     Route: 065
     Dates: start: 2022

REACTIONS (5)
  - Malaise [Recovered/Resolved]
  - Abdominal pain upper [Recovered/Resolved]
  - Drug dose omission by device [Unknown]
  - Accidental exposure to product [Unknown]
  - Device leakage [Unknown]

NARRATIVE: CASE EVENT DATE: 20220101
